FAERS Safety Report 5657731-5 (Version None)
Quarter: 2008Q1

REPORT INFORMATION
  Report Type: 
  Country: None (occurrence: None)
  Receive Date: 20080310
  Receipt Date: 20080304
  Transmission Date: 20080703
  Serious: Yes (Other)
  Sender: FDA-Public Use
  Company Number: JP-BOEHRINGER INGELHEIM GMBH, GERMANY-2008-BP-03326NB

PATIENT
  Age: 8 Decade
  Sex: Female

DRUGS (4)
  1. BI-SIFROL TABLETS [Suspect]
     Indication: PARKINSON'S DISEASE
     Route: 048
  2. CABERGOLINE [Suspect]
     Indication: PARKINSON'S DISEASE
     Route: 048
  3. MADOPAR [Suspect]
     Indication: PARKINSON'S DISEASE
     Route: 048
  4. SELEGILINE HCL [Concomitant]
     Indication: PARKINSON'S DISEASE
     Route: 048

REACTIONS (3)
  - FALL [None]
  - FRACTURE [None]
  - SOMNOLENCE [None]
